FAERS Safety Report 12141973 (Version 3)
Quarter: 2016Q2

REPORT INFORMATION
  Report Type: Spontaneous
  Country: SE (occurrence: SE)
  Receive Date: 20160303
  Receipt Date: 20160627
  Transmission Date: 20160815
  Serious: Yes (Hospitalization)
  Sender: FDA-Public Use
  Company Number: SE-PFIZER INC-2016072029

PATIENT
  Sex: Female

DRUGS (3)
  1. SALAZOPYRIN EN [Suspect]
     Active Substance: SULFASALAZINE
     Indication: COLITIS ULCERATIVE
     Dosage: 2 G, 1X/DAY
     Route: 063
  2. ALVEDON [Concomitant]
     Active Substance: ACETAMINOPHEN
     Indication: INSOMNIA
  3. ALVEDON [Concomitant]
     Active Substance: ACETAMINOPHEN
     Indication: HEADACHE
     Dosage: 1 G, AS NEEDED
     Route: 063

REACTIONS (3)
  - Exposure during breast feeding [Recovered/Resolved]
  - Contusion [Recovered/Resolved]
  - Rash [Recovered/Resolved]

NARRATIVE: CASE EVENT DATE: 20151018
